FAERS Safety Report 16335330 (Version 7)
Quarter: 2020Q1

REPORT INFORMATION
  Report Type: Report from Study
  Country: US (occurrence: US)
  Receive Date: 20190521
  Receipt Date: 20200310
  Transmission Date: 20200409
  Serious: No
  Sender: FDA-Public Use
  Company Number: PHEH2019US021096

PATIENT
  Age: 47 Year
  Sex: Female

DRUGS (2)
  1. MAYZENT [Suspect]
     Active Substance: SIPONIMOD
     Indication: PRODUCT USED FOR UNKNOWN INDICATION
     Dosage: 2 MG, QD
     Route: 048
     Dates: start: 20190509
  2. MAYZENT [Suspect]
     Active Substance: SIPONIMOD
     Dosage: 2 MG, QD
     Route: 048
     Dates: start: 20190513

REACTIONS (7)
  - Pain [Unknown]
  - Dyspnoea [Unknown]
  - Dizziness [Not Recovered/Not Resolved]
  - Neuralgia [Not Recovered/Not Resolved]
  - Condition aggravated [Unknown]
  - Headache [Not Recovered/Not Resolved]
  - Depression [Unknown]

NARRATIVE: CASE EVENT DATE: 20190509
